FAERS Safety Report 10090388 (Version 1)
Quarter: 2014Q2

REPORT INFORMATION
  Report Type: Spontaneous
  Country: US (occurrence: US)
  Receive Date: 20140421
  Receipt Date: 20140421
  Transmission Date: 20141212
  Serious: Yes (Hospitalization)
  Sender: FDA-Public Use
  Company Number: US-MPIJNJ-2014MPI001127

PATIENT
  Age: 46 Year
  Sex: Male
  Weight: 93.2 kg

DRUGS (1)
  1. VELCADE [Suspect]
     Indication: PLASMA CELL MYELOMA
     Dosage: 3.5 MG, 1/WEEK FOR 3 WEEKS FOLLOWED BY 1 WEEK OFF
     Route: 058

REACTIONS (3)
  - Investigation [Unknown]
  - Infection [Unknown]
  - Pain [Unknown]
